FAERS Safety Report 8403607-X (Version None)
Quarter: 2012Q2

REPORT INFORMATION
  Report Type: 
  Country: None (occurrence: None)
  Receive Date: 20120601
  Receipt Date: 20120503
  Transmission Date: 20120825
  Serious: No
  Sender: FDA-Public Use
  Company Number: US-ASTRAZENECA-2012SE28936

PATIENT
  Sex: Female

DRUGS (1)
  1. ARIMIDEX [Suspect]
     Route: 048

REACTIONS (5)
  - ALOPECIA [None]
  - BONE PAIN [None]
  - SYNCOPE [None]
  - ADVERSE EVENT [None]
  - ARTHRALGIA [None]
